FAERS Safety Report 10177215 (Version 1)
Quarter: 2014Q2

REPORT INFORMATION
  Report Type: Spontaneous
  Country: US (occurrence: US)
  Receive Date: 20140516
  Receipt Date: 20140516
  Transmission Date: 20141212
  Serious: Yes (Other)
  Sender: FDA-Public Use
  Company Number: US-ASTRAZENECA-2014SE31814

PATIENT
  Sex: 0

DRUGS (4)
  1. BRILINTA [Suspect]
     Route: 048
  2. ANGIOMAX [Concomitant]
  3. ASPIRIN [Concomitant]
  4. ANTICOAGULANT (UNSPECIFIED) [Concomitant]

REACTIONS (1)
  - Thrombosis [Unknown]
